FAERS Safety Report 5230800-X (Version None)
Quarter: 2007Q1

REPORT INFORMATION
  Report Type: 
  Country: None (occurrence: None)
  Receive Date: 20070202
  Receipt Date: 20070122
  Transmission Date: 20070707
  Serious: Yes (Other)
  Sender: FDA-Public Use
  Company Number: GXKR2007PL01130

PATIENT
  Age: 48 Year
  Sex: Female
  Weight: 71 kg

DRUGS (1)
  1. LEKOKLAR (NGX) (CLARITHROMYCIN) UNKNOWN [Suspect]
     Indication: SINUSITIS
     Dosage: ORAL
     Route: 048

REACTIONS (12)
  - ANXIETY [None]
  - CRYING [None]
  - DIZZINESS [None]
  - DIZZINESS POSTURAL [None]
  - DYSGEUSIA [None]
  - HALLUCINATION, AUDITORY [None]
  - HALLUCINATION, VISUAL [None]
  - PAROSMIA [None]
  - PSYCHOTIC DISORDER [None]
  - SUICIDAL IDEATION [None]
  - TRANCE [None]
  - TREMOR [None]
